FAERS Safety Report 25642726 (Version 2)
Quarter: 2025Q3

REPORT INFORMATION
  Report Type: Report from Study
  Country: US (occurrence: US)
  Receive Date: 20250805
  Receipt Date: 20250811
  Transmission Date: 20251020
  Serious: Yes (Other)
  Sender: ABBVIE
  Company Number: US-ABBVIE-6398557

PATIENT
  Sex: Male

DRUGS (1)
  1. SKYRIZI [Suspect]
     Active Substance: RISANKIZUMAB-RZAA
     Indication: Product used for unknown indication
     Route: 058

REACTIONS (7)
  - Metastatic neoplasm [Recovering/Resolving]
  - Fatigue [Recovering/Resolving]
  - Disease recurrence [Recovering/Resolving]
  - Emotional distress [Recovering/Resolving]
  - Visual impairment [Recovering/Resolving]
  - Reading disorder [Recovering/Resolving]
  - Unevaluable event [Unknown]
